FAERS Safety Report 25452658 (Version 1)
Quarter: 2025Q2

REPORT INFORMATION
  Report Type: Spontaneous
  Country: DE (occurrence: DE)
  Receive Date: 20250618
  Receipt Date: 20250618
  Transmission Date: 20250716
  Serious: Yes (Hospitalization, Other)
  Sender: MYLAN
  Company Number: DE-EMB-M202402668-1

PATIENT
  Sex: Male
  Weight: 2.88 kg

DRUGS (11)
  1. DOXEPIN [Suspect]
     Active Substance: DOXEPIN
     Indication: Depression
     Dosage: UNK UNK, QD (INITIALLY 100 MG/D, DURING PREGNANCY COURSE REDUCED TO 50 MG/D (DETAILS UNKNOWN))
     Dates: start: 202312, end: 202409
  2. DOXEPIN [Suspect]
     Active Substance: DOXEPIN
     Indication: Anxiety
  3. DOXEPIN [Suspect]
     Active Substance: DOXEPIN
     Indication: Panic disorder
  4. LORAZEPAM [Suspect]
     Active Substance: LORAZEPAM
     Indication: Borderline personality disorder
     Dosage: UNK, QD (INITIALLY 2.5 MG/D, THEN REDUCED TO 0.5 MG/D UNTIL DELIVERY)
     Dates: start: 202312, end: 202409
  5. LORAZEPAM [Suspect]
     Active Substance: LORAZEPAM
     Indication: Anxiety
  6. LORAZEPAM [Suspect]
     Active Substance: LORAZEPAM
     Indication: Panic disorder
  7. LORAZEPAM [Suspect]
     Active Substance: LORAZEPAM
     Indication: Agoraphobia
  8. NALOXONE HYDROCHLORIDE\TILIDINE HYDROCHLORIDE [Suspect]
     Active Substance: NALOXONE HYDROCHLORIDE\TILIDINE HYDROCHLORIDE
     Indication: Scoliosis
     Dosage: UNK UNK, QD (AT LEAST UNTIL GW 11 600/48 MG/D, THEN REDUCED DOSAGE OF 400/32 MG/D UNTIL DELIVERY)
     Dates: start: 202312, end: 202409
  9. NALOXONE HYDROCHLORIDE\TILIDINE HYDROCHLORIDE [Suspect]
     Active Substance: NALOXONE HYDROCHLORIDE\TILIDINE HYDROCHLORIDE
     Indication: Intervertebral disc protrusion
  10. NALOXONE HYDROCHLORIDE\TILIDINE HYDROCHLORIDE [Suspect]
     Active Substance: NALOXONE HYDROCHLORIDE\TILIDINE HYDROCHLORIDE
     Indication: Neuralgia
  11. FOLIC ACID [Concomitant]
     Active Substance: FOLIC ACID
     Indication: Prophylaxis of neural tube defect

REACTIONS (2)
  - Drug withdrawal syndrome neonatal [Recovered/Resolved]
  - Foetal exposure during pregnancy [Unknown]

NARRATIVE: CASE EVENT DATE: 20240901
